FAERS Safety Report 24962218 (Version 1)
Quarter: 2025Q1

REPORT INFORMATION
  Report Type: Spontaneous
  Country: US (occurrence: US)
  Receive Date: 20250212
  Receipt Date: 20250212
  Transmission Date: 20250409
  Serious: No
  Sender: PFIZER
  Company Number: US-PFIZER INC-202500029554

PATIENT
  Age: 51 Year
  Sex: Female

DRUGS (6)
  1. PAXLOVID [Suspect]
     Active Substance: NIRMATRELVIR\RITONAVIR
     Indication: COVID-19 treatment
     Dosage: 3 DF, 2X/DAY
     Dates: start: 202502
  2. METOPROLOL [Concomitant]
     Active Substance: METOPROLOL
     Indication: Post-acute COVID-19 syndrome
     Dates: start: 20230922
  3. AMLODIPINE [Concomitant]
     Active Substance: AMLODIPINE BESYLATE
     Indication: Cardiac disorder
     Dates: start: 20240411
  4. METFORMIN [Concomitant]
     Active Substance: METFORMIN HYDROCHLORIDE
     Indication: Post-acute COVID-19 syndrome
     Dates: start: 20250108
  5. NALTREXONE [Concomitant]
     Active Substance: NALTREXONE
     Indication: Post-acute COVID-19 syndrome
     Dates: start: 20240906
  6. VITAMIN D3 [Concomitant]
     Active Substance: CHOLECALCIFEROL

REACTIONS (1)
  - Expired product administered [Unknown]

NARRATIVE: CASE EVENT DATE: 20250201
